FAERS Safety Report 18449352 (Version 3)
Quarter: 2021Q3

REPORT INFORMATION
  Report Type: Report from Study
  Country: US (occurrence: US)
  Receive Date: 20201030
  Receipt Date: 20210727
  Transmission Date: 20211014
  Serious: Yes (Hospitalization, Other)
  Sender: FDA-Public Use
  Company Number: US-GILEAD-2018-0374554

PATIENT
  Age: 22 Year
  Sex: Male
  Weight: 71.5 kg

DRUGS (36)
  1. KEPPRA [Concomitant]
     Active Substance: LEVETIRACETAM
  2. POTASSIUM CHLORIDE. [Concomitant]
     Active Substance: POTASSIUM CHLORIDE
  3. ALBUTEROL;IPRATROPIUM [Concomitant]
     Active Substance: ALBUTEROL\IPRATROPIUM
  4. FLUCONAZOLE. [Concomitant]
     Active Substance: FLUCONAZOLE
  5. FENTANYL. [Concomitant]
     Active Substance: FENTANYL
  6. HUMALOG [Concomitant]
     Active Substance: INSULIN LISPRO
  7. SODIUM CHLORIDE. [Concomitant]
     Active Substance: SODIUM CHLORIDE
  8. PROTONIX [OMEPRAZOLE] [Concomitant]
     Active Substance: OMEPRAZOLE
  9. METOPROLOL TARTRATE. [Concomitant]
     Active Substance: METOPROLOL TARTRATE
  10. PROPOFOL. [Concomitant]
     Active Substance: PROPOFOL
  11. LEVETIRACETAM. [Concomitant]
     Active Substance: LEVETIRACETAM
  12. MYLANTA MAX [Concomitant]
  13. FLUDARABINE [Suspect]
     Active Substance: FLUDARABINE PHOSPHATE
     Indication: BONE MARROW CONDITIONING REGIMEN
     Dosage: 47.5 MG, QD
     Route: 042
     Dates: start: 20181123, end: 20181125
  14. METRONIDAZOLE. [Concomitant]
     Active Substance: METRONIDAZOLE
  15. MICAFUNGIN. [Concomitant]
     Active Substance: MICAFUNGIN SODIUM
  16. METHADONE [Concomitant]
     Active Substance: METHADONE HYDROCHLORIDE
  17. CALCIUM CARBONATE. [Concomitant]
     Active Substance: CALCIUM CARBONATE
  18. CYCLOPHOSPHAMIDE. [Suspect]
     Active Substance: CYCLOPHOSPHAMIDE
     Indication: BONE MARROW CONDITIONING REGIMEN
     Dosage: 1700 MG, ONCE
     Route: 042
     Dates: start: 20181125, end: 20181125
  19. DEXAMETHASONE. [Concomitant]
     Active Substance: DEXAMETHASONE
     Dosage: 10 MG
     Dates: start: 201812
  20. CALCIUM GLUCONATE. [Concomitant]
     Active Substance: CALCIUM GLUCONATE
  21. HYDROMORPHONE [Concomitant]
     Active Substance: HYDROMORPHONE
  22. SIMETHICONE (DIMETHICONE) [Concomitant]
     Active Substance: DIMETHICONE
  23. DOCUSATE;SENNA [Concomitant]
     Active Substance: DOCUSATE\SENNOSIDES
  24. KTE?X19 [Suspect]
     Active Substance: BREXUCABTAGENE AUTOLEUCEL
     Indication: B-CELL TYPE ACUTE LEUKAEMIA
     Dosage: 68 ML, ONCE
     Route: 042
     Dates: start: 20181128, end: 20181128
  25. GABAPENTIN. [Concomitant]
     Active Substance: GABAPENTIN
  26. SEVELAMER [Concomitant]
     Active Substance: SEVELAMER
  27. ALLOPURINOL. [Concomitant]
     Active Substance: ALLOPURINOL
  28. MAXIPIME [Concomitant]
     Active Substance: CEFEPIME HYDROCHLORIDE
  29. PANTOPRAZOLE [Concomitant]
     Active Substance: PANTOPRAZOLE
  30. PIPERACILLIN AND TAZOBACTAM [Concomitant]
     Active Substance: PIPERACILLIN SODIUM\TAZOBACTAM SODIUM
  31. ACICLOVIR [Concomitant]
     Active Substance: ACYCLOVIR
  32. ACETAMINOPHEN. [Concomitant]
     Active Substance: ACETAMINOPHEN
  33. LORAZEPAM. [Concomitant]
     Active Substance: LORAZEPAM
  34. MIRALAX [Concomitant]
     Active Substance: POLYETHYLENE GLYCOL 3350
  35. DIPHENHYDRAMINE. [Concomitant]
     Active Substance: DIPHENHYDRAMINE
  36. CEFEPIME [Concomitant]
     Active Substance: CEFEPIME HYDROCHLORIDE

REACTIONS (8)
  - Diplegia [Recovering/Resolving]
  - Disseminated intravascular coagulation [Recovered/Resolved]
  - Hypotension [Recovered/Resolved]
  - Headache [Recovered/Resolved]
  - Cytokine release syndrome [Recovered/Resolved]
  - Pyrexia [Recovered/Resolved]
  - Tachycardia [Recovered/Resolved]
  - Pyrexia [Recovered/Resolved]

NARRATIVE: CASE EVENT DATE: 20181204
